FAERS Safety Report 12833774 (Version 2)
Quarter: 2016Q4

REPORT INFORMATION
  Report Type: Spontaneous
  Country: NO (occurrence: NO)
  Receive Date: 20161010
  Receipt Date: 20161031
  Transmission Date: 20170207
  Serious: Yes (Death, Hospitalization)
  Sender: FDA-Public Use
  Company Number: PHHY2016NO136395

PATIENT
  Age: 68 Year
  Sex: Male

DRUGS (2)
  1. METHOTREXATE. [Suspect]
     Active Substance: METHOTREXATE
     Indication: PSORIATIC ARTHROPATHY
     Dosage: UNK
     Route: 065
  2. PREDNISOLONE. [Suspect]
     Active Substance: PREDNISOLONE
     Indication: PSORIATIC ARTHROPATHY
     Route: 065

REACTIONS (6)
  - Pneumomediastinum [Fatal]
  - Circulatory collapse [Fatal]
  - Systemic candida [Fatal]
  - Subcutaneous emphysema [Fatal]
  - Acute respiratory failure [Fatal]
  - Mediastinal abscess [Fatal]
